FAERS Safety Report 18288542 (Version 4)
Quarter: 2020Q4

REPORT INFORMATION
  Report Type: Report from Study
  Country: GB (occurrence: GB)
  Receive Date: 20200921
  Receipt Date: 20201228
  Transmission Date: 20210113
  Serious: Yes (Hospitalization, Other)
  Sender: FDA-Public Use
  Company Number: GB-BRISTOL-MYERS SQUIBB COMPANY-BMS-2020-075398

PATIENT
  Age: 51 Year
  Sex: Male

DRUGS (1)
  1. ABATACEPT [Suspect]
     Active Substance: ABATACEPT
     Indication: RHEUMATOID ARTHRITIS
     Dosage: 125 MILLIGRAM, QWK
     Route: 058
     Dates: start: 2016

REACTIONS (4)
  - Myocardial infarction [Unknown]
  - Back pain [Unknown]
  - Pneumonia [Unknown]
  - Chest pain [Unknown]

NARRATIVE: CASE EVENT DATE: 2020
